FAERS Safety Report 14588537 (Version 2)
Quarter: 2018Q1

REPORT INFORMATION
  Report Type: Spontaneous
  Country: JP (occurrence: JP)
  Receive Date: 20180301
  Receipt Date: 20180319
  Transmission Date: 20180509
  Serious: Yes (Other)
  Sender: FDA-Public Use
  Company Number: JP-009507513-1802JPN012429

PATIENT
  Age: 67 Year
  Sex: Male

DRUGS (11)
  1. TAKEPRON [Concomitant]
     Active Substance: LANSOPRAZOLE
  2. OPDIVO [Suspect]
     Active Substance: NIVOLUMAB
     Indication: NON-SMALL CELL LUNG CANCER RECURRENT
     Dosage: 120 MG, QD (STRENGHT REPORTED AS 20MG,100MG)
     Route: 041
     Dates: start: 20160928, end: 20160928
  3. SITAGLIPTIN PHOSPHATE [Suspect]
     Active Substance: SITAGLIPTIN PHOSPHATE
     Indication: TYPE 2 DIABETES MELLITUS
     Dosage: UNK
     Route: 048
  4. BASEN [Concomitant]
     Active Substance: VOGLIBOSE
  5. OPDIVO [Suspect]
     Active Substance: NIVOLUMAB
     Dosage: 120 MG, QD (STRENGHT REPORTED AS 20MG,100MG)
     Route: 041
     Dates: start: 20161026, end: 20161026
  6. INSULIN [Concomitant]
     Active Substance: INSULIN NOS
  7. ATINES [Concomitant]
     Active Substance: EPERISONE HYDROCHLORIDE
  8. OPDIVO [Suspect]
     Active Substance: NIVOLUMAB
     Dosage: 120 MG, QD (STRENGHT REPORTED AS 20MG,100MG)
     Route: 041
     Dates: start: 20161012, end: 20161012
  9. GLIMICRON [Concomitant]
     Active Substance: GLICLAZIDE
  10. METHYCOBAL [Concomitant]
     Active Substance: METHYLCOBALAMIN
  11. MAGMITT [Concomitant]
     Active Substance: MAGNESIUM OXIDE

REACTIONS (1)
  - Erythema multiforme [Recovered/Resolved]

NARRATIVE: CASE EVENT DATE: 20161001
